FAERS Safety Report 16417195 (Version 3)
Quarter: 2019Q3

REPORT INFORMATION
  Report Type: Spontaneous
  Country: US (occurrence: US)
  Receive Date: 20190611
  Receipt Date: 20190829
  Transmission Date: 20191004
  Serious: No
  Sender: FDA-Public Use
  Company Number: US-PFIZER INC-2019242536

PATIENT
  Age: 87 Year
  Sex: Female
  Weight: 56.7 kg

DRUGS (2)
  1. PREMARIN [Suspect]
     Active Substance: ESTROGENS, CONJUGATED
     Indication: HORMONE THERAPY
     Dosage: 1.25 MG, DAILY
     Route: 048
  2. PREMARIN [Suspect]
     Active Substance: ESTROGENS, CONJUGATED
     Indication: HOT FLUSH
     Dosage: UNK
     Dates: start: 1950

REACTIONS (3)
  - Body height decreased [Unknown]
  - Feeling abnormal [Unknown]
  - Vertigo [Recovered/Resolved]
